FAERS Safety Report 8150172-0 (Version None)
Quarter: 2012Q1

REPORT INFORMATION
  Report Type: 
  Country: None (occurrence: None)
  Receive Date: 20120220
  Receipt Date: 20120214
  Transmission Date: 20120608
  Serious: No
  Sender: FDA-Public Use
  Company Number: US-PFIZER INC-2012038817

PATIENT
  Sex: Female
  Weight: 95.238 kg

DRUGS (7)
  1. IBUPROFEN [Concomitant]
     Indication: LIMB INJURY
     Dosage: UNK
  2. ATENOLOL [Concomitant]
     Dosage: UNK
  3. CHANTIX [Suspect]
     Indication: SMOKING CESSATION THERAPY
     Dosage: 0.5 MG, 1X/DAY
     Route: 048
     Dates: start: 20120211
  4. ACETAMINOPHEN [Concomitant]
     Indication: LIMB INJURY
     Dosage: UNK
  5. ADVAIR DISKUS 100/50 [Concomitant]
     Indication: BRONCHITIS
     Dosage: UNK
  6. HYDROCHLOROTHIAZIDE [Concomitant]
     Indication: HYPERTENSION
     Dosage: UNK
  7. PREVACID [Concomitant]
     Indication: IRRITABLE BOWEL SYNDROME
     Dosage: UNK

REACTIONS (4)
  - MIGRAINE [None]
  - MALAISE [None]
  - ABDOMINAL PAIN UPPER [None]
  - VOMITING [None]
